FAERS Safety Report 14265546 (Version 2)
Quarter: 2018Q1

REPORT INFORMATION
  Report Type: Report from Study
  Country: US (occurrence: US)
  Receive Date: 20171208
  Receipt Date: 20180226
  Transmission Date: 20180508
  Serious: Yes (Hospitalization)
  Sender: FDA-Public Use
  Company Number: US-ACTELION-A-US2017-163878

PATIENT
  Age: 29 Year
  Sex: Female
  Weight: 66.21 kg

DRUGS (5)
  1. OPSUMIT [Suspect]
     Active Substance: MACITENTAN
     Indication: PULMONARY ARTERIAL HYPERTENSION
     Dosage: 10 MG, QD
     Route: 048
  2. LASIX [Concomitant]
     Active Substance: FUROSEMIDE
  3. SILDENAFIL. [Concomitant]
     Active Substance: SILDENAFIL
  4. ALDACTONE [Concomitant]
     Active Substance: SPIRONOLACTONE
  5. VELETRI [Suspect]
     Active Substance: EPOPROSTENOL
     Indication: PULMONARY ARTERIAL HYPERTENSION
     Dosage: 30 NG/KG, PER MIN
     Route: 042
     Dates: start: 2015

REACTIONS (2)
  - Device breakage [Recovered/Resolved]
  - Catheter placement [Unknown]

NARRATIVE: CASE EVENT DATE: 20171119
